FAERS Safety Report 25966646 (Version 2)
Quarter: 2025Q4

REPORT INFORMATION
  Report Type: Spontaneous
  Country: EU (occurrence: EU)
  Receive Date: 20251028
  Receipt Date: 20251118
  Transmission Date: 20260119
  Serious: Yes (Hospitalization)
  Sender: CELLTRION
  Company Number: EU-ABBVIE-6503736

PATIENT

DRUGS (4)
  1. ADALIMUMAB [Suspect]
     Active Substance: ADALIMUMAB
     Indication: Product used for unknown indication
     Route: 058
     Dates: start: 202403, end: 202408
  2. ADALIMUMAB [Suspect]
     Active Substance: ADALIMUMAB
  3. UPADACITINIB [Suspect]
     Active Substance: UPADACITINIB
     Indication: Dermatitis atopic
     Dosage: 15 MILLIGRAM, QD
     Route: 048
     Dates: start: 202408
  4. VALERATE C [Concomitant]
     Indication: Product used for unknown indication
     Dosage: DIFLUCORTOLONE VALERATE CREAM
     Route: 061

REACTIONS (2)
  - Hospitalisation [Unknown]
  - Skin test positive [Unknown]

NARRATIVE: CASE EVENT DATE: 20240701
